FAERS Safety Report 9233124 (Version 2)
Quarter: 2013Q2

REPORT INFORMATION
  Report Type: Spontaneous
  Country: BR (occurrence: BR)
  Receive Date: 20130416
  Receipt Date: 20130528
  Transmission Date: 20140414
  Serious: Yes (Other)
  Sender: FDA-Public Use
  Company Number: PHHY2013BR036028

PATIENT
  Sex: Female

DRUGS (1)
  1. RITALINA [Suspect]
     Indication: ATTENTION DEFICIT/HYPERACTIVITY DISORDER
     Dosage: 4 DF, DAILY
     Route: 048

REACTIONS (8)
  - Panic disorder [Recovered/Resolved]
  - Depression [Recovered/Resolved]
  - Emotional distress [Unknown]
  - Anxiety [Recovered/Resolved]
  - Learning disorder [Recovered/Resolved]
  - Conduct disorder [Not Recovered/Not Resolved]
  - Depressed mood [Not Recovered/Not Resolved]
  - Attention deficit/hyperactivity disorder [Unknown]
